FAERS Safety Report 14343216 (Version 1)
Quarter: 2017Q4

REPORT INFORMATION
  Report Type: Spontaneous
  Country: US (occurrence: US)
  Receive Date: 20171229
  Receipt Date: 20171229
  Transmission Date: 20180321
  Serious: No
  Sender: FDA-Public Use
  Company Number: None

PATIENT
  Age: 24 Year
  Sex: Female
  Weight: 54 kg

DRUGS (1)
  1. VYVANSE [Suspect]
     Active Substance: LISDEXAMFETAMINE DIMESYLATE
     Indication: ATTENTION DEFICIT/HYPERACTIVITY DISORDER
     Dosage: ?          QUANTITY:30 CAPSULE(S);?
     Route: 048
     Dates: start: 20120103

REACTIONS (6)
  - Condition aggravated [None]
  - Drug interaction [None]
  - Ear discomfort [None]
  - Fungal infection [None]
  - Paranasal sinus discomfort [None]
  - pH body fluid abnormal [None]

NARRATIVE: CASE EVENT DATE: 20170826
